FAERS Safety Report 7317636-0 (Version None)
Quarter: 2011Q1

REPORT INFORMATION
  Report Type: 
  Country: None (occurrence: None)
  Receive Date: 20110226
  Receipt Date: 20101123
  Transmission Date: 20110831
  Serious: No
  Sender: FDA-Public Use
  Company Number: US-ALLERGAN-1015227US

PATIENT
  Sex: Male

DRUGS (1)
  1. BOTOXA? [Suspect]
     Indication: INFREQUENT BOWEL MOVEMENTS
     Dosage: 60 UNITS, SINGLE
     Dates: start: 20100101, end: 20100101

REACTIONS (1)
  - INFREQUENT BOWEL MOVEMENTS [None]
